FAERS Safety Report 10432373 (Version 2)
Quarter: 2014Q3

REPORT INFORMATION
  Report Type: Spontaneous
  Country: FI (occurrence: FI)
  Receive Date: 20140905
  Receipt Date: 20140905
  Transmission Date: 20150326
  Serious: Yes (Other)
  Sender: FDA-Public Use
  Company Number: FI-BAYER-2013-076004

PATIENT
  Age: 16 Year
  Sex: Female

DRUGS (1)
  1. YAZ [Suspect]
     Active Substance: DROSPIRENONE\ETHINYL ESTRADIOL
     Indication: CONTRACEPTION
     Dosage: UNK
     Route: 048
     Dates: start: 20130210, end: 20130418

REACTIONS (3)
  - Pregnancy on oral contraceptive [None]
  - Stillbirth [None]
  - Drug ineffective [None]

NARRATIVE: CASE EVENT DATE: 20130315
